FAERS Safety Report 13444595 (Version 1)
Quarter: 2017Q2

REPORT INFORMATION
  Report Type: Spontaneous
  Country: US (occurrence: US)
  Receive Date: 20170414
  Receipt Date: 20170414
  Transmission Date: 20170830
  Serious: No
  Sender: FDA-Public Use
  Company Number: US-NOVOPROD-530700

PATIENT
  Age: 51 Year
  Sex: Female

DRUGS (2)
  1. TRESIBA [Suspect]
     Active Substance: INSULIN DEGLUDEC
     Indication: TYPE 1 DIABETES MELLITUS
     Dosage: 10 U, BID, AM AND PM
     Route: 058
     Dates: start: 201712
  2. TRESIBA [Suspect]
     Active Substance: INSULIN DEGLUDEC
     Dosage: ONCE A DAY
     Route: 058

REACTIONS (2)
  - Product use issue [Recovered/Resolved]
  - Blood glucose decreased [Recovered/Resolved]

NARRATIVE: CASE EVENT DATE: 20170131
